FAERS Safety Report 23685417 (Version 1)
Quarter: 2024Q1

REPORT INFORMATION
  Report Type: Spontaneous
  Country: PL (occurrence: PL)
  Receive Date: 20240329
  Receipt Date: 20240329
  Transmission Date: 20240409
  Serious: Yes (Hospitalization)
  Sender: FDA-Public Use
  Company Number: PL-AMGEN-POLSP2024055993

PATIENT
  Age: 15 Year
  Sex: Male

DRUGS (1)
  1. ADALIMUMAB [Suspect]
     Active Substance: ADALIMUMAB\ISOPROPYL ALCOHOL
     Indication: Crohn^s disease
     Dosage: UNK
     Route: 065

REACTIONS (5)
  - Anaemia [Unknown]
  - Metabolic acidosis [Unknown]
  - Sterile pyuria [Unknown]
  - Thrombocytopenia [Unknown]
  - Acute kidney injury [Unknown]
